FAERS Safety Report 9850138 (Version 1)
Quarter: 2014Q1

REPORT INFORMATION
  Report Type: Spontaneous
  Country: US (occurrence: None)
  Receive Date: 20140127
  Receipt Date: 20140127
  Transmission Date: 20141002
  Serious: Yes (Hospitalization)
  Sender: FDA-Public Use
  Company Number: None

PATIENT
  Age: 69 Year
  Sex: Female
  Weight: 67 kg

DRUGS (1)
  1. DOCETAXEL (TAXOTERE) [Suspect]

REACTIONS (4)
  - Radiation skin injury [None]
  - Burn infection [None]
  - Pyrexia [None]
  - Scab [None]
